FAERS Safety Report 7477953-0 (Version None)
Quarter: 2011Q2

REPORT INFORMATION
  Report Type: 
  Country: None (occurrence: None)
  Receive Date: 20110511
  Receipt Date: 20110511
  Transmission Date: 20111010
  Serious: Yes (Disabling)
  Sender: FDA-Public Use
  Company Number: None

PATIENT
  Age: 54 Year
  Sex: Female
  Weight: 48.0813 kg

DRUGS (7)
  1. ATENOLOL [Concomitant]
  2. RANITIDINE [Concomitant]
  3. PREDNISOLONE ACETATE [Suspect]
     Indication: EYE ALLERGY
     Dosage: 1 DROP EACH EYE EVERY HOUR FOR 24 INTRACORNEAL
     Route: 021
     Dates: start: 20110508, end: 20110508
  4. HYDROCHLOROTHIAZIDE [Concomitant]
  5. PLAVIX [Concomitant]
  6. ASPIRIN [Concomitant]
  7. ANTIHISTAMINE NASAL SPRAY [Concomitant]

REACTIONS (2)
  - DEPRESSION [None]
  - INSOMNIA [None]
